FAERS Safety Report 8283777 (Version 6)
Quarter: 2012Q4

REPORT INFORMATION
  Report Type: 
  Country: US (occurrence: US)
  Receive Date: 20111212
  Receipt Date: 20121008
  Transmission Date: 20130627
  Serious: Yes (Life-Threatening, Hospitalization, Other)
  Sender: FDA-Public Use
  Company Number: US-ASTELLAS-2011US006284

PATIENT
  Age: 43 Year
  Sex: Female
  Weight: 82 kg

DRUGS (15)
  1. PROGRAF [Suspect]
     Indication: LIVER TRANSPLANT
     Dosage: 3 mg, bid
     Route: 048
     Dates: start: 19991201
  2. FLEXERIL [Concomitant]
     Indication: PRODUCT USED FOR UNKNOWN INDICATION
     Dosage: 2 mg, tid
     Route: 048
  3. PRO-AIR [Concomitant]
     Indication: PRODUCT USED FOR UNKNOWN INDICATION
     Dosage: UNK
     Route: 065
  4. LORAZEPAM [Concomitant]
     Indication: PRODUCT USED FOR UNKNOWN INDICATION
     Dosage: 1 mg, 3xWeekly
     Route: 048
  5. TOPAMAX [Concomitant]
     Indication: PRODUCT USED FOR UNKNOWN INDICATION
     Dosage: 50 mg, tid
     Route: 048
  6. FOSAMAX [Concomitant]
     Indication: PRODUCT USED FOR UNKNOWN INDICATION
     Dosage: 70 mg, Weekly
     Route: 048
  7. COLACE [Concomitant]
     Indication: PRODUCT USED FOR UNKNOWN INDICATION
     Dosage: 100 mg, UID/QD
     Route: 048
  8. GABAPENTIN [Concomitant]
     Indication: PRODUCT USED FOR UNKNOWN INDICATION
     Dosage: 600 mg, tid
     Route: 048
  9. OXYCODONE [Concomitant]
     Indication: PRODUCT USED FOR UNKNOWN INDICATION
     Dosage: 30 mg every 4 hours
     Route: 048
  10. ATIVAN [Concomitant]
     Indication: ANXIETY
     Dosage: 1 mg, tid
     Route: 048
     Dates: start: 1972
  11. ZOLPIDEM [Concomitant]
     Indication: INSOMNIA
     Dosage: 10 mg, UID/QD
     Route: 048
     Dates: start: 2010
  12. CYCLOBENZAPRINE [Concomitant]
     Indication: MUSCLE RELAXANT THERAPY
     Dosage: 10 mg, tid
     Route: 048
     Dates: start: 2009
  13. BACTRIM [Concomitant]
     Indication: ANTIBIOTIC THERAPY
     Dosage: Unknown mg once daily
     Route: 048
     Dates: start: 199912
  14. TOPIRAMATE [Concomitant]
     Indication: CLUSTER HEADACHE
     Dosage: 50 mg, tid
     Route: 048
     Dates: start: 1997
  15. PANTOPRAZOLE [Concomitant]
     Indication: ANTACID THERAPY
     Dosage: 40 mg, UID/QD
     Route: 048
     Dates: start: 19991201

REACTIONS (14)
  - Apparent death [Recovered/Resolved]
  - Accident [Unknown]
  - Oesophageal varices haemorrhage [Recovering/Resolving]
  - Brain injury [Unknown]
  - Surgery [Unknown]
  - Pulse absent [Unknown]
  - Sensory loss [Not Recovered/Not Resolved]
  - Sepsis [Unknown]
  - Coma [Recovered/Resolved]
  - Haemorrhage [Recovered/Resolved]
  - Loss of consciousness [Unknown]
  - Peroneal nerve palsy [Not Recovered/Not Resolved]
  - Pain [Not Recovered/Not Resolved]
  - Neuropathy peripheral [Not Recovered/Not Resolved]
